FAERS Safety Report 23526980 (Version 1)
Quarter: 2024Q1

REPORT INFORMATION
  Report Type: Spontaneous
  Country: ES (occurrence: ES)
  Receive Date: 20240215
  Receipt Date: 20240215
  Transmission Date: 20240410
  Serious: Yes (Hospitalization)
  Sender: FDA-Public Use
  Company Number: ES-TAKEDA-2024TUS013659

PATIENT
  Age: 81 Year
  Sex: Male

DRUGS (1)
  1. MARIBAVIR [Suspect]
     Active Substance: MARIBAVIR
     Indication: Cytomegalovirus infection
     Dosage: 2 DOSAGE FORM, BID
     Route: 065

REACTIONS (3)
  - Hospitalisation [Unknown]
  - Off label use [Unknown]
  - No adverse event [Unknown]
